FAERS Safety Report 9992557 (Version 2)
Quarter: 2014Q2

REPORT INFORMATION
  Report Type: Spontaneous
  Country: US (occurrence: US)
  Receive Date: 20140310
  Receipt Date: 20140401
  Transmission Date: 20141212
  Serious: No
  Sender: FDA-Public Use
  Company Number: US-GILEAD-2014-0096203

PATIENT
  Sex: Male

DRUGS (2)
  1. SOVALDI [Suspect]
     Indication: HEPATITIS C
     Dosage: UNK
     Route: 065
     Dates: start: 20140219
  2. RIBAVIRIN [Concomitant]

REACTIONS (2)
  - Fatigue [Unknown]
  - Headache [Unknown]
